FAERS Safety Report 14108110 (Version 2)
Quarter: 2017Q4

REPORT INFORMATION
  Report Type: Spontaneous
  Country: US (occurrence: US)
  Receive Date: 20171019
  Receipt Date: 20171204
  Transmission Date: 20180321
  Serious: Yes (Other)
  Sender: FDA-Public Use
  Company Number: US-LUNDBECK-DKLU2038504

PATIENT
  Age: 22 Year
  Sex: Female

DRUGS (1)
  1. NORTHERA [Suspect]
     Active Substance: DROXIDOPA
     Indication: AUTONOMIC NEUROPATHY
     Route: 048

REACTIONS (9)
  - Headache [Unknown]
  - Aphasia [Unknown]
  - Autonomic nervous system imbalance [Unknown]
  - Fatigue [Unknown]
  - Condition aggravated [Unknown]
  - Seizure like phenomena [Recovered/Resolved]
  - Hyperhidrosis [Unknown]
  - Tremor [Unknown]
  - Spinal operation [Unknown]

NARRATIVE: CASE EVENT DATE: 20170804
